FAERS Safety Report 4886951-2 (Version None)
Quarter: 2006Q1

REPORT INFORMATION
  Report Type: 
  Country: None (occurrence: None)
  Receive Date: 20060120
  Receipt Date: 20060106
  Transmission Date: 20060701
  Serious: Yes (Hospitalization)
  Sender: FDA-Public Use
  Company Number: US-MERCK-0601USA01259

PATIENT
  Age: 61 Year
  Sex: Female

DRUGS (5)
  1. VIOXX [Suspect]
     Indication: RHEUMATOID ARTHRITIS
     Route: 048
     Dates: start: 20000821, end: 20040311
  2. AMLODIPINE [Concomitant]
     Indication: HYPERTENSION
     Route: 065
  3. FUROSEMIDE [Concomitant]
     Route: 065
  4. SERETIDE [Concomitant]
     Route: 065
  5. PARACETAMOL TABLETS BP [Concomitant]
     Route: 065

REACTIONS (25)
  - ARTHROPATHY [None]
  - ASTHMA [None]
  - BACK PAIN [None]
  - BREAST MASS [None]
  - BRONCHITIS [None]
  - BRONCHITIS ACUTE [None]
  - CARDIAC FAILURE [None]
  - CELLULITIS [None]
  - CHONDROCALCINOSIS PYROPHOSPHATE [None]
  - CHRONIC OBSTRUCTIVE PULMONARY DISEASE [None]
  - CONJUNCTIVITIS [None]
  - DERMATITIS ATOPIC [None]
  - DYSPEPSIA [None]
  - EXCORIATION [None]
  - HYPERHIDROSIS [None]
  - HYPERTENSION [None]
  - LOWER RESPIRATORY TRACT INFECTION [None]
  - MYOCARDIAL INFARCTION [None]
  - NIPPLE DISORDER [None]
  - POSTOPERATIVE WOUND INFECTION [None]
  - SCIATICA [None]
  - SYNCOPE [None]
  - TENDONITIS [None]
  - VAGINAL CANDIDIASIS [None]
  - WOUND [None]
